FAERS Safety Report 21711627 (Version 1)
Quarter: 2022Q4

REPORT INFORMATION
  Report Type: Spontaneous
  Country: US (occurrence: US)
  Receive Date: 20221212
  Receipt Date: 20221212
  Transmission Date: 20230113
  Serious: No
  Sender: FDA-Public Use
  Company Number: US-JNJFOC-20200153106

PATIENT
  Age: 95 Year
  Sex: Female

DRUGS (2)
  1. IMODIUM MULTI-SYMPTOM RELIEF [Suspect]
     Active Substance: DIMETHICONE\LOPERAMIDE HYDROCHLORIDE
     Indication: Diarrhoea
     Dosage: 2 CAPLETS ONCE
     Route: 048
     Dates: start: 20200128, end: 20200129
  2. METOPROLOL [Concomitant]
     Active Substance: METOPROLOL
     Indication: Arrhythmia

REACTIONS (4)
  - Nervousness [Not Recovered/Not Resolved]
  - Product size issue [Unknown]
  - Flushing [Not Recovered/Not Resolved]
  - Abdominal distension [Not Recovered/Not Resolved]
